FAERS Safety Report 12537056 (Version 2)
Quarter: 2016Q3

REPORT INFORMATION
  Report Type: Spontaneous
  Country: US (occurrence: US)
  Receive Date: 20160707
  Receipt Date: 20160818
  Transmission Date: 20161109
  Serious: No
  Sender: FDA-Public Use
  Company Number: US-PFIZER INC-2016322766

PATIENT
  Age: 49 Year
  Sex: Male
  Weight: 124.74 kg

DRUGS (4)
  1. LYRICA [Suspect]
     Active Substance: PREGABALIN
     Indication: HYPOAESTHESIA
     Dosage: 75 MG, UNK
     Route: 048
  2. LYRICA [Suspect]
     Active Substance: PREGABALIN
     Indication: PARAESTHESIA
     Dosage: 150 MG, THREE TIMES DAILY
     Route: 048
     Dates: start: 20130921
  3. LYRICA [Suspect]
     Active Substance: PREGABALIN
     Indication: HEADACHE
  4. LYRICA [Suspect]
     Active Substance: PREGABALIN
     Indication: NEURALGIA

REACTIONS (7)
  - Paraesthesia [Recovering/Resolving]
  - Discomfort [Unknown]
  - Drug effect incomplete [Unknown]
  - Headache [Recovered/Resolved with Sequelae]
  - Hypoaesthesia [Recovered/Resolved with Sequelae]
  - Pain [Unknown]
  - Product use issue [Unknown]

NARRATIVE: CASE EVENT DATE: 20160621
